FAERS Safety Report 7794617-4 (Version None)
Quarter: 2011Q4

REPORT INFORMATION
  Report Type: 
  Country: None (occurrence: None)
  Receive Date: 20111004
  Receipt Date: 20110921
  Transmission Date: 20120403
  Serious: Yes (Hospitalization)
  Sender: FDA-Public Use
  Company Number: JP-CELGENEUS-087-50794-11061135

PATIENT
  Sex: Male

DRUGS (9)
  1. MAGNESIUM SULFATE [Concomitant]
     Indication: CONSTIPATION
     Route: 065
     Dates: start: 20110518
  2. ALINAMIN-F [Concomitant]
     Route: 065
     Dates: start: 20110520, end: 20110524
  3. VIDAZA [Suspect]
     Dosage: 75 MILLIGRAM
     Route: 041
     Dates: start: 20110623, end: 20110629
  4. ONDASETRON [Concomitant]
     Route: 065
     Dates: start: 20110516, end: 20110519
  5. PANTOL [Concomitant]
     Route: 065
     Dates: start: 20110520, end: 20110525
  6. GLAKAY [Concomitant]
     Route: 048
  7. PRIMOBOLAN-DEPOT INJ [Concomitant]
     Route: 065
     Dates: start: 20110516, end: 20110520
  8. TELEMINSOFT [Concomitant]
     Route: 065
     Dates: start: 20110520
  9. VIDAZA [Suspect]
     Indication: MYELODYSPLASTIC SYNDROME
     Dosage: 75 MILLIGRAM
     Route: 041
     Dates: start: 20110516, end: 20110519

REACTIONS (1)
  - ILEUS PARALYTIC [None]
